FAERS Safety Report 9352776 (Version 1)
Quarter: 2013Q2

REPORT INFORMATION
  Report Type: Spontaneous
  Country: US (occurrence: US)
  Receive Date: 20130618
  Receipt Date: 20130618
  Transmission Date: 20140414
  Serious: No
  Sender: FDA-Public Use
  Company Number: US-BAYER-2013-073296

PATIENT
  Sex: Female
  Weight: 73 kg

DRUGS (5)
  1. BETASERON [Suspect]
     Dosage: 0.3 MG, UNK
     Dates: start: 2008, end: 20130521
  2. LISINOPRIL [Concomitant]
     Dosage: 10 MG, UNK
  3. CALCIUM [Concomitant]
  4. VITAMIN C [Concomitant]
     Dosage: 500 MG, UNK
  5. ASPIRIN LOW [Concomitant]
     Dosage: 81 MG, UNK

REACTIONS (1)
  - Drug ineffective [Unknown]
